FAERS Safety Report 4865812-9 (Version None)
Quarter: 2005Q4

REPORT INFORMATION
  Report Type: 
  Country: None (occurrence: None)
  Receive Date: 20051220
  Receipt Date: 20051205
  Transmission Date: 20060501
  Serious: Yes (Life-Threatening, Hospitalization)
  Sender: FDA-Public Use
  Company Number: 2005-01704

PATIENT
  Age: 64 Year
  Sex: Male
  Weight: 69.7 kg

DRUGS (10)
  1. VELCADE [Suspect]
     Indication: MULTIPLE MYELOMA
     Dosage: SEE IMAGE
     Route: 042
     Dates: start: 20050530, end: 20050801
  2. VELCADE [Suspect]
     Indication: MULTIPLE MYELOMA
     Dosage: SEE IMAGE
     Route: 042
     Dates: start: 20050822
  3. SODIUM CHLORIDE [Concomitant]
  4. CEFROXADINE (CEFROXADINE) [Concomitant]
  5. ROXITHROMYCIN (ROXITHROMYCIN) [Concomitant]
  6. PROCHLORPERAZINE [Concomitant]
  7. AGAROL (PHENOLPHTHALEIN, PARAFFIN, LIQUID) [Concomitant]
  8. SLOW-K [Concomitant]
  9. MAGMIN (MAGNESIUM ASPARTATE) [Concomitant]
  10. AUGMENTIN DUO FORTE (CLAVULANATE POTSSIUM, AMOXICILLIN TRIHYDRATE) [Concomitant]

REACTIONS (5)
  - ANAEMIA [None]
  - BLOOD CREATININE INCREASED [None]
  - DUODENAL ULCER HAEMORRHAGE [None]
  - FALL [None]
  - VOMITING [None]
